FAERS Safety Report 11528286 (Version 5)
Quarter: 2015Q4

REPORT INFORMATION
  Report Type: Spontaneous
  Country: US (occurrence: US)
  Receive Date: 20150921
  Receipt Date: 20151110
  Transmission Date: 20160304
  Serious: Yes (Hospitalization)
  Sender: FDA-Public Use
  Company Number: US-ACTELION PHARMACEUTICALS US, INC.-A-NJ2015-117918

PATIENT
  Age: 67 Year
  Sex: Female

DRUGS (4)
  1. VENTAVIS [Suspect]
     Active Substance: ILOPROST
     Indication: PULMONARY ARTERIAL HYPERTENSION
     Dosage: 5 MCG, 6-9X/DAY
     Route: 055
  2. ADCIRCA [Concomitant]
     Active Substance: TADALAFIL
  3. VENTAVIS [Suspect]
     Active Substance: ILOPROST
     Dosage: 2.5 MCG, UNK
     Route: 055
  4. VENTAVIS [Suspect]
     Active Substance: ILOPROST
     Dosage: 2.5 MCG, 6-9 X/DAY
     Route: 055
     Dates: start: 20120606

REACTIONS (9)
  - Sinusitis [Unknown]
  - Back pain [Unknown]
  - Fluid retention [Unknown]
  - Arthralgia [Unknown]
  - Dyspnoea [Unknown]
  - Bursitis [Unknown]
  - Oedema [Unknown]
  - Pain in extremity [Unknown]
  - Respiratory tract inflammation [Unknown]

NARRATIVE: CASE EVENT DATE: 20150504
